FAERS Safety Report 10471253 (Version 1)
Quarter: 2014Q3

REPORT INFORMATION
  Report Type: Spontaneous
  Country: US (occurrence: US)
  Receive Date: 20140923
  Receipt Date: 20140923
  Transmission Date: 20150326
  Serious: No
  Sender: FDA-Public Use
  Company Number: US-PFIZER INC-2014259555

PATIENT
  Age: 19 Year
  Sex: Female

DRUGS (8)
  1. TRAMADOL [Concomitant]
     Active Substance: TRAMADOL
     Dosage: UNK
  2. HYDROXYCHLOROQUINE [Concomitant]
     Active Substance: HYDROXYCHLOROQUINE
     Indication: SCLERODERMA
     Dosage: 200 MG, DAILY WITH FOOD
     Route: 048
     Dates: start: 20120827
  3. PREDNISONE. [Concomitant]
     Active Substance: PREDNISONE
     Indication: SCLERODERMA
     Dosage: 10 MG, DAILY (5MG, TAKE 2 TABLETS DAILY)
     Route: 048
     Dates: start: 20130528
  4. REVATIO [Suspect]
     Active Substance: SILDENAFIL CITRATE
     Indication: RAYNAUD^S PHENOMENON
     Dosage: 20 MG, 3X/DAY (QUANTITY: 90; REFILL: 11TIME)
     Route: 048
     Dates: start: 20120620
  5. AZATHIOPRINE. [Concomitant]
     Active Substance: AZATHIOPRINE
     Indication: SCLERODERMA
     Dosage: 50 MG, DAILY
     Route: 048
     Dates: start: 20130619
  6. REVATIO [Suspect]
     Active Substance: SILDENAFIL CITRATE
     Indication: SCLERODERMA
  7. AMLODIPINE [Concomitant]
     Active Substance: AMLODIPINE BESYLATE
     Indication: SCLERODERMA
     Dosage: 5 MG, DAILY
     Dates: start: 20120620
  8. PLAQUENIL [Concomitant]
     Active Substance: HYDROXYCHLOROQUINE SULFATE
     Dosage: UNK

REACTIONS (3)
  - Therapeutic response changed [Unknown]
  - Off label use [Unknown]
  - Pre-existing condition improved [Unknown]
